FAERS Safety Report 14372007 (Version 1)
Quarter: 2018Q1

REPORT INFORMATION
  Report Type: Spontaneous
  Country: VN (occurrence: VN)
  Receive Date: 20180110
  Receipt Date: 20180110
  Transmission Date: 20180509
  Serious: Yes (Disabling)
  Sender: FDA-Public Use
  Company Number: VN-ASTRAZENECA-2017SF29390

PATIENT
  Age: 62 Year
  Sex: Male
  Weight: 70 kg

DRUGS (5)
  1. BRILINTA [Suspect]
     Active Substance: TICAGRELOR
     Indication: ACUTE CORONARY SYNDROME
     Route: 048
     Dates: start: 20171101, end: 20171130
  2. CEREBROLYSIN [Concomitant]
     Active Substance: CEREBROLYSIN
  3. PERINDOPRIL [Concomitant]
     Active Substance: PERINDOPRIL
  4. ASPIRIN. [Concomitant]
     Active Substance: ASPIRIN
     Indication: ACUTE CORONARY SYNDROME
     Route: 048
     Dates: start: 20171101, end: 20171130
  5. ROSUVASTATIN. [Concomitant]
     Active Substance: ROSUVASTATIN
     Indication: ACUTE CORONARY SYNDROME
     Route: 048
     Dates: start: 20171101, end: 20171120

REACTIONS (2)
  - Diplegia [Recovering/Resolving]
  - Cerebral haemorrhage [Recovered/Resolved with Sequelae]

NARRATIVE: CASE EVENT DATE: 20171201
